FAERS Safety Report 15402789 (Version 3)
Quarter: 2019Q1

REPORT INFORMATION
  Report Type: Spontaneous
  Country: JP (occurrence: JP)
  Receive Date: 20180919
  Receipt Date: 20190103
  Transmission Date: 20190417
  Serious: Yes (Hospitalization)
  Sender: FDA-Public Use
  Company Number: JP-EISAI MEDICAL RESEARCH-EC-2018-045223

PATIENT
  Age: 71 Year
  Sex: Male

DRUGS (9)
  1. FYCOMPA [Suspect]
     Active Substance: PERAMPANEL
     Indication: PRODUCT USED FOR UNKNOWN INDICATION
     Route: 048
     Dates: start: 20170309, end: 20170419
  2. FYCOMPA [Suspect]
     Active Substance: PERAMPANEL
     Route: 048
     Dates: start: 20170608, end: 20180228
  3. DEPAKENE-R [Concomitant]
     Active Substance: VALPROATE SODIUM
     Indication: EPILEPSY
     Dosage: UNKNOWN
  4. TOPINA [Concomitant]
     Active Substance: TOPIRAMATE
     Indication: EPILEPSY
     Dosage: UNKNOWN
  5. RIVOTRIL [Concomitant]
     Active Substance: CLONAZEPAM
     Indication: EPILEPSY
     Dosage: UNKNOWN
  6. SELENICA-R [Concomitant]
     Active Substance: VALPROATE SODIUM
     Indication: EPILEPSY
     Dosage: UNKNOWN
  7. PHENOBAL [Concomitant]
     Active Substance: PHENOBARBITAL
     Indication: EPILEPSY
     Dosage: UNKNOWN
  8. FYCOMPA [Suspect]
     Active Substance: PERAMPANEL
     Route: 048
     Dates: start: 20170420, end: 20170607
  9. FYCOMPA [Suspect]
     Active Substance: PERAMPANEL
     Route: 048
     Dates: start: 20180301

REACTIONS (2)
  - Spinal compression fracture [Recovering/Resolving]
  - Fall [Recovered/Resolved]

NARRATIVE: CASE EVENT DATE: 20170825
